FAERS Safety Report 9236833 (Version 1)
Quarter: 2013Q2

REPORT INFORMATION
  Report Type: Spontaneous
  Country: US (occurrence: US)
  Receive Date: 20130417
  Receipt Date: 20130417
  Transmission Date: 20140414
  Serious: Yes (Other)
  Sender: FDA-Public Use
  Company Number: US-WATSON-2013-06555

PATIENT
  Age: 62 Year
  Sex: Female
  Weight: 62 kg

DRUGS (3)
  1. LORATADINE AND PSEUDOEPHEDRINE SULFATE [Suspect]
     Indication: SEASONAL ALLERGY
     Dosage: ONE TABLET DAILY
     Route: 048
     Dates: start: 20130330, end: 20130401
  2. VITAMIN E                          /00110501/ [Concomitant]
     Indication: PRODUCT USED FOR UNKNOWN INDICATION
     Dosage: UNK
     Route: 065
  3. VITAMIN D /00107901/ [Concomitant]
     Indication: PRODUCT USED FOR UNKNOWN INDICATION
     Dosage: UNK
     Route: 065

REACTIONS (5)
  - Hallucination, visual [Recovered/Resolved]
  - Eye pruritus [Recovered/Resolved]
  - Eye discharge [Recovered/Resolved]
  - Insomnia [Recovered/Resolved]
  - Hypopnoea [Recovered/Resolved]
